FAERS Safety Report 6314245-7 (Version None)
Quarter: 2009Q3

REPORT INFORMATION
  Report Type: 
  Country: None (occurrence: None)
  Receive Date: 20090817
  Receipt Date: 20090804
  Transmission Date: 20100115
  Serious: Yes (Hospitalization)
  Sender: FDA-Public Use
  Company Number: 2008AL005549

PATIENT
  Age: 66 Year
  Sex: Male
  Weight: 81.1939 kg

DRUGS (21)
  1. DIGOXIN [Suspect]
     Indication: ATRIAL FIBRILLATION
     Dosage: 0.25MG, QHS, PO
     Route: 048
     Dates: start: 20071201
  2. METOPROLOL [Concomitant]
  3. RAMIPRIL [Concomitant]
  4. CRESTOR [Concomitant]
  5. FLOMAX [Concomitant]
  6. BISOPROLOL [Concomitant]
  7. COLCHICINE [Concomitant]
  8. MEPHYTON [Concomitant]
  9. RAMIPRIL [Concomitant]
  10. WARFARIN [Concomitant]
  11. PROPAFENONE HCL [Concomitant]
  12. DESONIDE [Concomitant]
  13. ALBUTEROL [Concomitant]
  14. CLARITHROMYCIN [Concomitant]
  15. ROSUVASTATIN [Concomitant]
  16. FINASTERIDE [Concomitant]
  17. CEPHALEXIN [Concomitant]
  18. TAMSULOSIN HCL [Concomitant]
  19. DILTIAZEM [Concomitant]
  20. FLOMAX [Concomitant]
  21. FLUTICASONE [Concomitant]

REACTIONS (16)
  - ATRIAL FIBRILLATION [None]
  - BUNDLE BRANCH BLOCK RIGHT [None]
  - CEREBROVASCULAR ACCIDENT [None]
  - CONTUSION [None]
  - ECONOMIC PROBLEM [None]
  - HEART RATE INCREASED [None]
  - HEART RATE IRREGULAR [None]
  - HYPERLIPIDAEMIA [None]
  - INJURY [None]
  - PALPITATIONS [None]
  - SICK SINUS SYNDROME [None]
  - SLEEP APNOEA SYNDROME [None]
  - SLEEP DISORDER [None]
  - VISUAL FIELD DEFECT [None]
  - VISUAL IMPAIRMENT [None]
  - WEIGHT DECREASED [None]
